FAERS Safety Report 4668974-1 (Version None)
Quarter: 2005Q2

REPORT INFORMATION
  Report Type: 
  Country: None (occurrence: None)
  Receive Date: 20050523
  Receipt Date: 20050209
  Transmission Date: 20051028
  Serious: Yes (Life-Threatening, Hospitalization)
  Sender: FDA-Public Use
  Company Number: BE-GLAXOSMITHKLINE-B0372075A

PATIENT
  Age: 89 Year
  Sex: Male
  Weight: 75 kg

DRUGS (4)
  1. AUGMENTIN '125' [Suspect]
     Indication: WOUND INFECTION
     Dosage: 500MG THREE TIMES PER DAY
     Route: 048
     Dates: start: 20041208, end: 20041215
  2. SINTROM [Concomitant]
     Indication: ATRIAL FIBRILLATION
     Route: 048
  3. ENALAPRIL MALEATE [Concomitant]
     Indication: HYPERTENSION
     Dosage: 20MG PER DAY
     Route: 048
  4. ALLOPURINOL [Concomitant]
     Indication: HYPERURICAEMIA
     Dosage: 100MG PER DAY
     Route: 048

REACTIONS (9)
  - ABNORMAL BEHAVIOUR [None]
  - CATATONIA [None]
  - COGNITIVE DISORDER [None]
  - CONFUSIONAL STATE [None]
  - ENCEPHALITIS [None]
  - HEADACHE [None]
  - LYMPHOCYTE COUNT INCREASED [None]
  - MENINGITIS [None]
  - TOXIC INDUCED ENCEPHALOPATHY [None]
